FAERS Safety Report 17398132 (Version 1)
Quarter: 2020Q1

REPORT INFORMATION
  Report Type: Spontaneous
  Country: US (occurrence: US)
  Receive Date: 20200210
  Receipt Date: 20200210
  Transmission Date: 20200409
  Serious: Yes (Other)
  Sender: FDA-Public Use
  Company Number: US-EPIC PHARMA LLC-2020EPC00028

PATIENT
  Age: 56 Year
  Sex: Male
  Weight: 87.98 kg

DRUGS (5)
  1. OXYCODONE HYDROCHLORIDE. [Suspect]
     Active Substance: OXYCODONE HYDROCHLORIDE
     Indication: PAIN
     Dosage: 15 MG, 5X/DAY
     Route: 048
     Dates: start: 2011, end: 202001
  2. VITAMIN D3 [Concomitant]
     Active Substance: CHOLECALCIFEROL
  3. OXYCODONE HYDROCHLORIDE. [Suspect]
     Active Substance: OXYCODONE HYDROCHLORIDE
     Dosage: 15 MG, 5X/DAY
     Route: 048
     Dates: start: 20200120
  4. XANAX [Concomitant]
     Active Substance: ALPRAZOLAM
  5. MULTIVITAMIN MENS 50+ [Concomitant]

REACTIONS (13)
  - Visual impairment [Unknown]
  - Insomnia [Unknown]
  - Malaise [Unknown]
  - Feeling abnormal [Unknown]
  - Diarrhoea [Recovered/Resolved]
  - Drug withdrawal syndrome [Recovered/Resolved]
  - Vomiting [Recovered/Resolved]
  - Sneezing [Unknown]
  - Asthenia [Recovered/Resolved]
  - Arthralgia [Unknown]
  - Thyroid cancer [Not Recovered/Not Resolved]
  - Homicidal ideation [Unknown]
  - Back pain [Unknown]

NARRATIVE: CASE EVENT DATE: 201905
